FAERS Safety Report 4898798-1 (Version None)
Quarter: 2006Q1

REPORT INFORMATION
  Report Type: 
  Country: None (occurrence: None)
  Receive Date: 20060127
  Receipt Date: 20060105
  Transmission Date: 20060701
  Serious: Yes (Other)
  Sender: FDA-Public Use
  Company Number: US200601000774

PATIENT
  Age: 9 Year
  Sex: Female
  Weight: 23.6 kg

DRUGS (4)
  1. STRATTER (ATOMOXETINE HYDROCHLORIDE) CAPSULE [Suspect]
     Indication: ATTENTION DEFICIT/HYPERACTIVITY DISORDER
     Dosage: 25 MG; SEE IMAGE
     Dates: start: 20030701
  2. STRATTER (ATOMOXETINE HYDROCHLORIDE) CAPSULE [Suspect]
     Indication: ATTENTION DEFICIT/HYPERACTIVITY DISORDER
     Dosage: 25 MG; SEE IMAGE
     Dates: start: 20030701
  3. ALBUTEROL (ALBUTEROL SALBUTAMOL) [Concomitant]
  4. ZYRTEC /GFR/ [Concomitant]

REACTIONS (21)
  - ABDOMINAL PAIN [None]
  - ABDOMINAL PAIN UPPER [None]
  - AGITATION [None]
  - ANOREXIA [None]
  - CHEST PAIN [None]
  - CONVULSION [None]
  - DEPRESSION [None]
  - DIZZINESS [None]
  - DRUG EFFECT DECREASED [None]
  - DYSURIA [None]
  - GASTROENTERITIS VIRAL [None]
  - HEAD INJURY [None]
  - HEADACHE [None]
  - HEPATOMEGALY [None]
  - INFLUENZA [None]
  - MALAISE [None]
  - NAUSEA [None]
  - PRESCRIBED OVERDOSE [None]
  - SUICIDAL IDEATION [None]
  - URINE ABNORMALITY [None]
  - WEIGHT DECREASED [None]
